FAERS Safety Report 7406281-4 (Version None)
Quarter: 2011Q2

REPORT INFORMATION
  Report Type: 
  Country: None (occurrence: None)
  Receive Date: 20110401
  Receipt Date: 20110315
  Transmission Date: 20111010
  Serious: Yes (Other)
  Sender: FDA-Public Use
  Company Number: 2011SP012567

PATIENT
  Sex: Female

DRUGS (3)
  1. PREGNYL [Suspect]
     Indication: ANTEPARTUM HAEMORRHAGE
     Dosage: IM
     Route: 030
  2. PREGNYL [Suspect]
     Indication: HORMONE THERAPY
     Dosage: IM
     Route: 030
  3. PREGNYL [Suspect]
     Indication: INFERTILITY
     Dosage: IM
     Route: 030

REACTIONS (1)
  - DRUG EXPOSURE DURING PREGNANCY [None]
